FAERS Safety Report 8808779 (Version 1)
Quarter: 2012Q4

REPORT INFORMATION
  Report Type: Spontaneous
  Country: US (occurrence: None)
  Receive Date: 20120920
  Receipt Date: 20120920
  Transmission Date: 20130627
  Serious: Yes (Hospitalization)
  Sender: FDA-Public Use
  Company Number: None

PATIENT
  Age: 77 Year
  Sex: Male
  Weight: 118.34 kg

DRUGS (1)
  1. RITUXAN [Suspect]
     Indication: CLL
     Route: 042
     Dates: start: 20120622, end: 20120622

REACTIONS (7)
  - Dyspnoea [None]
  - Chills [None]
  - Back pain [None]
  - Chest pain [None]
  - Pneumonia [None]
  - Urinary tract infection [None]
  - Infusion related reaction [None]
